FAERS Safety Report 10669696 (Version 3)
Quarter: 2015Q2

REPORT INFORMATION
  Report Type: Spontaneous
  Country: US (occurrence: US)
  Receive Date: 20141222
  Receipt Date: 20150624
  Transmission Date: 20150821
  Serious: Yes (Death, Hospitalization, Other)
  Sender: FDA-Public Use
  Company Number: US-GLAXOSMITHKLINE INC.-US2014039470

PATIENT
  Sex: Male

DRUGS (13)
  1. DIGOXIN. [Concomitant]
     Active Substance: DIGOXIN
  2. LEVOXYL [Concomitant]
     Active Substance: LEVOTHYROXINE SODIUM
  3. PANTOPRAZOLE [Concomitant]
     Active Substance: PANTOPRAZOLE SODIUM
  4. ADVAIR DISKUS [Suspect]
     Active Substance: FLUTICASONE PROPIONATE\SALMETEROL XINAFOATE
     Indication: CHRONIC OBSTRUCTIVE PULMONARY DISEASE
     Dosage: 1 PUFF(S), BID
     Route: 055
  5. ALDACTONE [Concomitant]
     Active Substance: SPIRONOLACTONE
  6. CLOPIDOGREL [Concomitant]
     Active Substance: CLOPIDOGREL BISULFATE
  7. DIPHENOXYLATE [Concomitant]
     Active Substance: DIPHENOXYLATE
  8. LIALDA [Concomitant]
     Active Substance: MESALAMINE
  9. UCERIS [Concomitant]
     Active Substance: BUDESONIDE
  10. SIMVASTATIN. [Concomitant]
     Active Substance: SIMVASTATIN
  11. OXYGEN. [Concomitant]
     Active Substance: OXYGEN
  12. MONTELUKAST [Concomitant]
     Active Substance: MONTELUKAST SODIUM
  13. DALIRESP [Concomitant]
     Active Substance: ROFLUMILAST

REACTIONS (4)
  - Respiratory failure [Fatal]
  - Infection [Fatal]
  - Hospitalisation [Unknown]
  - Crohn^s disease [Fatal]

NARRATIVE: CASE EVENT DATE: 2014
